FAERS Safety Report 10629003 (Version 1)
Quarter: 2014Q4

REPORT INFORMATION
  Report Type: Spontaneous
  Country: US (occurrence: US)
  Receive Date: 20141205
  Receipt Date: 20141205
  Transmission Date: 20150529
  Serious: No
  Sender: FDA-Public Use
  Company Number: US-BRISTOL-MYERS SQUIBB COMPANY-21568043

PATIENT
  Age: 79 Year
  Sex: Male
  Weight: 113.38 kg

DRUGS (15)
  1. VITAMIN D [Concomitant]
     Active Substance: CHOLECALCIFEROL
  2. XANAX [Concomitant]
     Active Substance: ALPRAZOLAM
  3. VITAMIN E [Concomitant]
     Active Substance: .ALPHA.-TOCOPHEROL
  4. OXYCODONE [Concomitant]
     Active Substance: OXYCODONE
  5. OXYCONTIN [Concomitant]
     Active Substance: OXYCODONE HYDROCHLORIDE
  6. ZANTAC [Concomitant]
     Active Substance: RANITIDINE HYDROCHLORIDE
  7. MUCINEX [Concomitant]
     Active Substance: GUAIFENESIN
  8. SYNTHROID [Concomitant]
     Active Substance: LEVOTHYROXINE SODIUM
  9. XARELTO [Concomitant]
     Active Substance: RIVAROXABAN
  10. PREVACID [Concomitant]
     Active Substance: LANSOPRAZOLE
  11. ALBUTEROL. [Concomitant]
     Active Substance: ALBUTEROL
  12. OXYGEN. [Concomitant]
     Active Substance: OXYGEN
  13. COUMADIN [Suspect]
     Active Substance: WARFARIN SODIUM
     Indication: THROMBOSIS
  14. LISINOPRIL. [Concomitant]
     Active Substance: LISINOPRIL
  15. PROMETHAZINE [Concomitant]
     Active Substance: PROMETHAZINE\PROMETHAZINE HYDROCHLORIDE

REACTIONS (1)
  - Adverse event [Unknown]
